FAERS Safety Report 9465828 (Version 1)
Quarter: 2013Q3

REPORT INFORMATION
  Report Type: Spontaneous
  Country: BR (occurrence: BR)
  Receive Date: 20130820
  Receipt Date: 20130820
  Transmission Date: 20140515
  Serious: Yes (Other)
  Sender: FDA-Public Use
  Company Number: BR-PFIZER INC-2013239749

PATIENT
  Age: 73 Year
  Sex: Female
  Weight: 62 kg

DRUGS (2)
  1. LYRICA [Suspect]
     Indication: PAIN
     Dosage: 75 MG, 1X/DAY (ONE CAPSULE FOR 5 DAYS)
     Route: 048
     Dates: start: 2011, end: 2011
  2. LYRICA [Suspect]
     Dosage: 75 MG, 2X/DAY (ONE CAPSULE, TWICE A DAY)
     Route: 048
     Dates: start: 2011

REACTIONS (1)
  - Spinal disorder [Unknown]
